FAERS Safety Report 11004040 (Version 1)
Quarter: 2015Q2

REPORT INFORMATION
  Report Type: Spontaneous
  Country: US (occurrence: None)
  Receive Date: 20150408
  Receipt Date: 20150408
  Transmission Date: 20150821
  Serious: No
  Sender: FDA-Public Use
  Company Number: None

PATIENT
  Age: 34 Year
  Sex: Female
  Weight: 77.57 kg

DRUGS (3)
  1. MONONESSA [Suspect]
     Active Substance: ETHINYL ESTRADIOL\NORGESTIMATE
     Indication: CONTRACEPTION
     Dosage: 0.25 -35MG, 1 TABLET, DAILY BY MOUTH
     Route: 048
     Dates: end: 20150129
  2. LORATADINE. [Suspect]
     Active Substance: LORATADINE
  3. PHENTERMINE HCL [Suspect]
     Active Substance: PHENTERMINE HYDROCHLORIDE

REACTIONS (3)
  - Alopecia [None]
  - Trichorrhexis [None]
  - Menstruation irregular [None]

NARRATIVE: CASE EVENT DATE: 20150129
